FAERS Safety Report 5600260-5 (Version None)
Quarter: 2008Q1

REPORT INFORMATION
  Report Type: 
  Country: None (occurrence: None)
  Receive Date: 20080123
  Receipt Date: 20080115
  Transmission Date: 20080703
  Serious: Yes (Life-Threatening, Hospitalization)
  Sender: FDA-Public Use
  Company Number: JP-JNJFOC-20080102063

PATIENT
  Age: 56 Year
  Sex: Male

DRUGS (7)
  1. RISPERDAL [Suspect]
     Indication: AGITATION
     Route: 048
  2. RISPERDAL [Suspect]
     Indication: RESTLESSNESS
     Route: 048
  3. RISPERDAL [Suspect]
     Indication: SCHIZOPHRENIA
     Route: 048
  4. TEGRETOL [Concomitant]
     Indication: AGITATION
     Route: 048
  5. TEGRETOL [Concomitant]
     Indication: RESTLESSNESS
     Route: 048
  6. TETRAMIDE [Concomitant]
     Indication: AGITATION
     Route: 048
  7. TETRAMIDE [Concomitant]
     Indication: RESTLESSNESS
     Route: 048

REACTIONS (3)
  - DEHYDRATION [None]
  - DIABETIC KETOACIDOTIC HYPERGLYCAEMIC COMA [None]
  - PNEUMONIA [None]
